FAERS Safety Report 5875116-3 (Version None)
Quarter: 2008Q3

REPORT INFORMATION
  Report Type: 
  Country: None (occurrence: None)
  Receive Date: 20080909
  Receipt Date: 20080905
  Transmission Date: 20090109
  Serious: Yes (Hospitalization)
  Sender: FDA-Public Use
  Company Number: A0746621A

PATIENT
  Age: 5 Year
  Sex: Male
  Weight: 22 kg

DRUGS (1)
  1. SERETIDE [Suspect]
     Indication: ASTHMA
     Dosage: 2PUFF TWICE PER DAY
     Route: 055
     Dates: start: 20080601

REACTIONS (7)
  - ASTHMATIC CRISIS [None]
  - COUGH [None]
  - DRUG INEFFECTIVE [None]
  - DYSPHONIA [None]
  - PHARMACEUTICAL PRODUCT COMPLAINT [None]
  - RALES [None]
  - TACHYCARDIA [None]
